FAERS Safety Report 10613594 (Version 1)
Quarter: 2014Q4

REPORT INFORMATION
  Report Type: Spontaneous
  Country: US (occurrence: US)
  Receive Date: 20141128
  Receipt Date: 20141128
  Transmission Date: 20150529
  Serious: Yes (Hospitalization)
  Sender: FDA-Public Use
  Company Number: US-AMGEN-USASP2014092201

PATIENT
  Age: 68 Year
  Sex: Female

DRUGS (1)
  1. ENBREL [Suspect]
     Active Substance: ETANERCEPT
     Indication: RHEUMATOID ARTHRITIS
     Dosage: 50 MG, EVERY THIRD WEEK
     Route: 065
     Dates: start: 20050601, end: 2013

REACTIONS (6)
  - Foot deformity [Not Recovered/Not Resolved]
  - Blister infected [Recovered/Resolved]
  - Pain [Unknown]
  - Abscess limb [Recovered/Resolved]
  - Hand deformity [Not Recovered/Not Resolved]
  - Fear [Recovered/Resolved]

NARRATIVE: CASE EVENT DATE: 2014
